FAERS Safety Report 17751930 (Version 1)
Quarter: 2020Q2

REPORT INFORMATION
  Report Type: Report from Study
  Country: None (occurrence: US)
  Receive Date: 20200506
  Receipt Date: 20200506
  Transmission Date: 20200714
  Serious: Yes (Hospitalization)
  Sender: FDA-Public Use
  Company Number: US-ABBVIE-20K-163-3392475-00

PATIENT
  Sex: Female

DRUGS (1)
  1. HUMIRA [Suspect]
     Active Substance: ADALIMUMAB
     Indication: HIDRADENITIS
     Route: 058

REACTIONS (5)
  - Condition aggravated [Recovering/Resolving]
  - Dermatitis contact [Recovering/Resolving]
  - Myalgia [Not Recovered/Not Resolved]
  - Painful respiration [Not Recovered/Not Resolved]
  - Rubber sensitivity [Recovering/Resolving]
